FAERS Safety Report 23421010 (Version 1)
Quarter: 2024Q1

REPORT INFORMATION
  Report Type: Spontaneous
  Country: FR (occurrence: FR)
  Receive Date: 20240119
  Receipt Date: 20240119
  Transmission Date: 20240410
  Serious: Yes (Life-Threatening, Other)
  Sender: FDA-Public Use
  Company Number: None

PATIENT

DRUGS (5)
  1. LAMICTAL [Suspect]
     Active Substance: LAMOTRIGINE
     Indication: Poisoning deliberate
     Dosage: 10 DF, TOTAL
     Route: 048
     Dates: start: 20231206, end: 20231206
  2. TERALITHE [Suspect]
     Active Substance: LITHIUM CARBONATE
     Indication: Poisoning deliberate
     Dosage: 50 DF, TOTAL
     Route: 048
     Dates: start: 20231206, end: 20231206
  3. QUETIAPINE FUMARATE [Suspect]
     Active Substance: QUETIAPINE FUMARATE
     Indication: Poisoning deliberate
     Dosage: 10 DF, TOTAL
     Route: 048
     Dates: start: 20231206, end: 20231206
  4. MIRTAZAPINE [Suspect]
     Active Substance: MIRTAZAPINE
     Indication: Poisoning deliberate
     Dosage: 10 DF, TOTAL
     Route: 048
     Dates: start: 20231206, end: 20231206
  5. CYMBALTA [Suspect]
     Active Substance: DULOXETINE HYDROCHLORIDE
     Indication: Poisoning deliberate
     Dosage: 14 DF, TOTAL
     Route: 048
     Dates: start: 20231206, end: 20231206

REACTIONS (5)
  - Coma [Recovered/Resolved]
  - Oliguria [Recovered/Resolved]
  - Acute kidney injury [Recovered/Resolved]
  - Seizure [Recovered/Resolved]
  - Vomiting [Recovered/Resolved]

NARRATIVE: CASE EVENT DATE: 20231206
